FAERS Safety Report 11331663 (Version 2)
Quarter: 2015Q3

REPORT INFORMATION
  Report Type: Spontaneous
  Country: TW (occurrence: TW)
  Receive Date: 20150803
  Receipt Date: 20150924
  Transmission Date: 20151125
  Serious: Yes (Death, Hospitalization, Other)
  Sender: FDA-Public Use
  Company Number: TW-ELI_LILLY_AND_COMPANY-TW201507010261

PATIENT
  Age: 41 Year
  Sex: Male

DRUGS (2)
  1. GEMCITABINE HYDROCHLORIDE. [Suspect]
     Active Substance: GEMCITABINE HYDROCHLORIDE
     Indication: CHOLANGIOCARCINOMA
     Dosage: BI-WEEKLY
     Route: 042
  2. DICLOFENAC [Concomitant]
     Active Substance: DICLOFENAC
     Indication: ABDOMINAL PAIN
     Dosage: UNK, UNKNOWN
     Route: 065

REACTIONS (11)
  - Haemorrhage [Unknown]
  - Muscle rigidity [Unknown]
  - Nausea [Unknown]
  - Hypovolaemic shock [Unknown]
  - Pancreatitis [Unknown]
  - Malignant neoplasm progression [Fatal]
  - Intestinal perforation [Recovered/Resolved]
  - Abdominal tenderness [Unknown]
  - Vomiting [Unknown]
  - Abdominal pain [Unknown]
  - Abdominal rebound tenderness [Unknown]

NARRATIVE: CASE EVENT DATE: 20080619
